FAERS Safety Report 5491346-7 (Version None)
Quarter: 2007Q4

REPORT INFORMATION
  Report Type: 
  Country: None (occurrence: None)
  Receive Date: 20071017
  Receipt Date: 20071008
  Transmission Date: 20080405
  Serious: Yes (Hospitalization)
  Sender: FDA-Public Use
  Company Number: 2007SP020438

PATIENT
  Age: 45 Year
  Sex: Male
  Weight: 80 kg

DRUGS (2)
  1. TEMODAL [Suspect]
     Indication: GLIOBLASTOMA
     Dosage: 200 MG/M2;QD; PO
     Route: 048
     Dates: end: 20070624
  2. DOXORUBICIN HCL [Suspect]
     Indication: GLIOBLASTOMA
     Route: 048
     Dates: end: 20070709

REACTIONS (1)
  - PNEUMOCYSTIS JIROVECI PNEUMONIA [None]
